APPROVED DRUG PRODUCT: IMODIUM A-D
Active Ingredient: LOPERAMIDE HYDROCHLORIDE
Strength: 1MG/5ML
Dosage Form/Route: SOLUTION;ORAL
Application: N019487 | Product #001
Applicant: KENVUE BRANDS LLC
Approved: Mar 1, 1988 | RLD: Yes | RS: No | Type: DISCN